FAERS Safety Report 7679918-2 (Version None)
Quarter: 2011Q3

REPORT INFORMATION
  Report Type: 
  Country: None (occurrence: None)
  Receive Date: 20110812
  Receipt Date: 20110810
  Transmission Date: 20111222
  Serious: Yes (Death, Hospitalization, Other)
  Sender: FDA-Public Use
  Company Number: AU-PFIZER INC-HQWYE903305AUG03

PATIENT
  Age: 39 Year
  Sex: Male

DRUGS (4)
  1. EFFEXOR [Suspect]
     Dosage: UNK
     Route: 048
  2. OLANZAPINE [Suspect]
     Dosage: UNK
     Route: 048
  3. CLOZAPINE [Suspect]
     Indication: SCHIZOPHRENIA
     Dosage: 200.0 MG, 1X/DAY
     Route: 048
     Dates: start: 20020716
  4. VALPROATE SODIUM [Suspect]
     Dosage: UNK
     Route: 048

REACTIONS (7)
  - HYPOCALCAEMIA [None]
  - CARDIAC ARREST [None]
  - HYPOKALAEMIA [None]
  - HYPONATRAEMIA [None]
  - NEUROLEPTIC MALIGNANT SYNDROME [None]
  - CARDIOMYOPATHY [None]
  - SHOCK [None]
